FAERS Safety Report 10269486 (Version 3)
Quarter: 2014Q4

REPORT INFORMATION
  Report Type: Report from Study
  Country: US (occurrence: US)
  Receive Date: 20140701
  Receipt Date: 20141020
  Transmission Date: 20150528
  Serious: Yes (Hospitalization)
  Sender: FDA-Public Use
  Company Number: US-BIOGENIDEC-2014BI060786

PATIENT
  Age: 66 Year
  Sex: Female

DRUGS (10)
  1. VITAMIN D [Concomitant]
     Active Substance: CHOLECALCIFEROL
  2. CALTRATE [Concomitant]
     Active Substance: CALCIUM CARBONATE
  3. VITAMIN B12 [Concomitant]
     Active Substance: CYANOCOBALAMIN
  4. HYDROCHLOROTHIAZIDE. [Concomitant]
     Active Substance: HYDROCHLOROTHIAZIDE
  5. LANTANOPROST [Concomitant]
  6. VITAMIN E [Concomitant]
     Active Substance: .ALPHA.-TOCOPHEROL
  7. TECFIDERA [Suspect]
     Active Substance: DIMETHYL FUMARATE
     Indication: MULTIPLE SCLEROSIS
     Route: 048
     Dates: start: 201308
  8. TECFIDERA [Suspect]
     Active Substance: DIMETHYL FUMARATE
     Indication: MULTIPLE SCLEROSIS
     Route: 048
     Dates: start: 20130827
  9. VITAMIN A [Concomitant]
     Active Substance: VITAMIN A
  10. VITAMIN C [Concomitant]
     Active Substance: ASCORBIC ACID

REACTIONS (6)
  - Fatigue [Unknown]
  - Large intestinal haemorrhage [Unknown]
  - Dehydration [Unknown]
  - Diverticulum intestinal haemorrhagic [Unknown]
  - Pruritus [Unknown]
  - Abdominal pain upper [Unknown]

NARRATIVE: CASE EVENT DATE: 20140601
